FAERS Safety Report 9300944 (Version 1)
Quarter: 2013Q2

REPORT INFORMATION
  Report Type: Spontaneous
  Country: US (occurrence: None)
  Receive Date: 20130520
  Receipt Date: 20130520
  Transmission Date: 20140414
  Serious: Yes (Hospitalization, Disabling)
  Sender: FDA-Public Use
  Company Number: None

PATIENT
  Age: 62 Year
  Sex: Male
  Weight: 93.9 kg

DRUGS (1)
  1. FACTIVE [Suspect]
     Indication: UPPER RESPIRATORY TRACT INFECTION
     Route: 048
     Dates: start: 20111201, end: 20111202

REACTIONS (6)
  - Pyrexia [None]
  - Tendonitis [None]
  - Gait disturbance [None]
  - Tendon rupture [None]
  - Impaired driving ability [None]
  - Impaired work ability [None]
